FAERS Safety Report 11046504 (Version 1)
Quarter: 2015Q2

REPORT INFORMATION
  Report Type: Spontaneous
  Country: US (occurrence: US)
  Receive Date: 20150420
  Receipt Date: 20150420
  Transmission Date: 20150821
  Serious: No
  Sender: FDA-Public Use
  Company Number: US-TEVA-473277USA

PATIENT
  Sex: Female
  Weight: 62.65 kg

DRUGS (4)
  1. UNSPECIFIED THYROID MEDICATIONS [Concomitant]
     Indication: BASEDOW^S DISEASE
  2. NICOTINIC ACID [Suspect]
     Active Substance: NIACIN
  3. MEVACOR [Suspect]
     Active Substance: LOVASTATIN
     Indication: BLOOD CHOLESTEROL INCREASED
  4. PRAVACHOL [Suspect]
     Active Substance: PRAVASTATIN SODIUM
     Indication: BLOOD CHOLESTEROL INCREASED
     Dates: start: 1991

REACTIONS (1)
  - Drug ineffective [Unknown]
